FAERS Safety Report 4288460-0 (Version None)
Quarter: 2004Q1

REPORT INFORMATION
  Report Type: 
  Country: None (occurrence: None)
  Receive Date: 20040204
  Receipt Date: 20040121
  Transmission Date: 20041129
  Serious: Yes (Other)
  Sender: FDA-Public Use
  Company Number: A-CH2004-04322

PATIENT
  Age: 71 Year
  Sex: Female

DRUGS (9)
  1. TRACLEER [Suspect]
     Indication: PULMONARY HYPERTENSION
     Dosage: 31.25 7 125 62.5 MG, BID, ORAL
     Route: 048
     Dates: start: 20030710, end: 20030811
  2. TRACLEER [Suspect]
     Indication: PULMONARY HYPERTENSION
     Dosage: 31.25 7 125 62.5 MG, BID, ORAL
     Route: 048
     Dates: start: 20030812, end: 20031215
  3. TRACLEER [Suspect]
     Indication: PULMONARY HYPERTENSION
     Dosage: 31.25 7 125 62.5 MG, BID, ORAL
     Route: 048
     Dates: start: 20031216, end: 20040112
  4. TRACLEER [Suspect]
     Indication: PULMONARY HYPERTENSION
     Dosage: 31.25 7 125 62.5 MG, BID, ORAL
     Route: 048
     Dates: start: 20040113
  5. FUROSEMIDE [Concomitant]
  6. THYROXIN (LEVOTHYROXINE SODIUM) [Concomitant]
  7. OMEPRAZOLE [Concomitant]
  8. WARFARIN (WARFARIN0 [Concomitant]
  9. SPIRONOLACTONE [Concomitant]

REACTIONS (4)
  - ALANINE AMINOTRANSFERASE INCREASED [None]
  - ASPARTATE AMINOTRANSFERASE INCREASED [None]
  - BLOOD ALKALINE PHOSPHATASE INCREASED [None]
  - GAMMA-GLUTAMYLTRANSFERASE INCREASED [None]
